FAERS Safety Report 24554280 (Version 1)
Quarter: 2024Q4

REPORT INFORMATION
  Report Type: Report from Study
  Country: CA (occurrence: CA)
  Receive Date: 20241028
  Receipt Date: 20241028
  Transmission Date: 20250115
  Serious: Yes (Other)
  Sender: AMGEN
  Company Number: CA-002147023-NVSC2024CA038814

PATIENT
  Sex: Female

DRUGS (1)
  1. AIMOVIG [Suspect]
     Active Substance: ERENUMAB-AOOE
     Indication: Migraine
     Dosage: UNK
     Route: 050
     Dates: start: 20210329, end: 20240813

REACTIONS (5)
  - Pneumonia [Unknown]
  - Migraine [Not Recovered/Not Resolved]
  - Headache [Unknown]
  - Malaise [Unknown]
  - Constipation [Unknown]
